FAERS Safety Report 6581940-4 (Version None)
Quarter: 2010Q1

REPORT INFORMATION
  Report Type: 
  Country: None (occurrence: None)
  Receive Date: 20100215
  Receipt Date: 20100203
  Transmission Date: 20100710
  Serious: Yes (Hospitalization)
  Sender: FDA-Public Use
  Company Number: BR-ELI_LILLY_AND_COMPANY-BR201002001199

PATIENT
  Sex: Male

DRUGS (11)
  1. HUMULIN R [Suspect]
     Indication: BLOOD GLUCOSE INCREASED
     Dosage: 12 IU, UNKNOWN
     Route: 065
  2. HUMULIN R [Suspect]
     Dosage: UNK, UNKNOWN
     Route: 065
  3. PLASIL [Concomitant]
     Dosage: UNK, AS NEEDED
  4. DIPYRONE [Concomitant]
     Dosage: UNK, 4/D
     Route: 065
  5. HEPARIN [Concomitant]
     Dosage: UNK, UNKNOWN
     Route: 065
  6. VANCOMYCIN [Concomitant]
     Dosage: UNK, 4/D
     Route: 065
  7. TRAMADOL [Concomitant]
     Dosage: 50 MG, 4/D
     Route: 065
  8. PROPRANOLOL [Concomitant]
     Dosage: 40 MG, 2/D
     Route: 065
  9. HYDROCHLOROTHIAZIDE [Concomitant]
     Dosage: 25 MG, DAILY (1/D)
     Route: 065
  10. ASS [Concomitant]
     Dosage: 100 MG, DAILY (1/D)
     Route: 065
  11. SIMVASTATIN [Concomitant]
     Dosage: 40 MG, DAILY (1/D)
     Route: 065

REACTIONS (2)
  - DRUG INEFFECTIVE [None]
  - SURGERY [None]
